FAERS Safety Report 9711719 (Version 1)
Quarter: 2013Q4

REPORT INFORMATION
  Report Type: Spontaneous
  Country: US (occurrence: US)
  Receive Date: 20131126
  Receipt Date: 20131126
  Transmission Date: 20140711
  Serious: No
  Sender: FDA-Public Use
  Company Number: US-BRISTOL-MYERS SQUIBB COMPANY-19099753

PATIENT
  Age: 67 Year
  Sex: Male
  Weight: 99.77 kg

DRUGS (4)
  1. BYDUREON [Suspect]
     Indication: TYPE 2 DIABETES MELLITUS
     Route: 058
     Dates: start: 201306
  2. CRESTOR [Concomitant]
  3. ENALAPRIL [Concomitant]
  4. AZILSARTAN MEDOXOMIL [Concomitant]

REACTIONS (3)
  - Blood glucose abnormal [Not Recovered/Not Resolved]
  - Renal pain [Not Recovered/Not Resolved]
  - Vision blurred [Not Recovered/Not Resolved]
